FAERS Safety Report 4346378-9 (Version None)
Quarter: 2004Q2

REPORT INFORMATION
  Report Type: 
  Country: None (occurrence: None)
  Receive Date: 20040426
  Receipt Date: 20030506
  Transmission Date: 20050107
  Serious: No
  Sender: FDA-Public Use
  Company Number: US-GLAXOSMITHKLINE-A0407367A

PATIENT
  Age: 80 Year
  Sex: Female

DRUGS (3)
  1. ZOFRAN [Suspect]
     Indication: PROPHYLACTIC CHEMOTHERAPY
     Dosage: 8MG TWICE PER DAY
     Route: 048
     Dates: start: 20030301
  2. TAXOL [Concomitant]
  3. CARBOPLATIN [Concomitant]

REACTIONS (3)
  - DRUG INEFFECTIVE [None]
  - NAUSEA [None]
  - VOMITING [None]
